FAERS Safety Report 4386509-8 (Version None)
Quarter: 2004Q2

REPORT INFORMATION
  Report Type: 
  Country: None (occurrence: None)
  Receive Date: 20040629
  Receipt Date: 20040622
  Transmission Date: 20050107
  Serious: Yes (Life-Threatening, Hospitalization)
  Sender: FDA-Public Use
  Company Number: AE-MERCK-0406USA01960

PATIENT
  Age: 54 Year
  Sex: Male

DRUGS (5)
  1. ASPIRIN [Concomitant]
     Route: 048
  2. TENORMIN [Concomitant]
     Route: 048
  3. ISOKET [Concomitant]
     Route: 058
  4. ZOCOR [Suspect]
     Route: 048
  5. ZOCOR [Suspect]
     Route: 048

REACTIONS (1)
  - ACUTE MYOCARDIAL INFARCTION [None]
